FAERS Safety Report 8949352 (Version 2)
Quarter: 2013Q1

REPORT INFORMATION
  Report Type: Spontaneous
  Country: US (occurrence: US)
  Receive Date: 20121206
  Receipt Date: 20130206
  Transmission Date: 20140127
  Serious: Yes (Other)
  Sender: FDA-Public Use
  Company Number: US-PFIZER INC-2012302156

PATIENT
  Age: 19 Year
  Sex: Male

DRUGS (1)
  1. XYNTHA [Suspect]
     Indication: FACTOR VIII DEFICIENCY
     Dosage: UNK, WEEKLY
     Route: 042
     Dates: start: 2008

REACTIONS (1)
  - Muscle haemorrhage [Recovered/Resolved]
